FAERS Safety Report 9771089 (Version 1)
Quarter: 2013Q4

REPORT INFORMATION
  Report Type: Spontaneous
  Country: US (occurrence: US)
  Receive Date: 20131218
  Receipt Date: 20131218
  Transmission Date: 20140711
  Serious: Yes (Death, Other)
  Sender: FDA-Public Use
  Company Number: US-PFIZER INC-2013362246

PATIENT
  Sex: Male

DRUGS (4)
  1. MORPHINE SULFATE [Suspect]
     Dosage: UNK
     Route: 048
  2. OXYCODONE HYDROCHLORIDE [Suspect]
     Dosage: 30 MG, 3-4 TIMES A DAY
     Route: 048
  3. OXYCONTIN [Suspect]
     Indication: DRUG ABUSE
     Dosage: 80 MG, 3X/DAY
     Route: 048
  4. HEROIN [Suspect]
     Indication: DRUG ABUSE
     Dosage: UNK
     Route: 065

REACTIONS (2)
  - Death [Fatal]
  - Substance abuse [Fatal]
